FAERS Safety Report 4569253-3 (Version None)
Quarter: 2005Q1

REPORT INFORMATION
  Report Type: 
  Country: None (occurrence: None)
  Receive Date: 20050203
  Receipt Date: 20041222
  Transmission Date: 20050727
  Serious: Yes (Hospitalization)
  Sender: FDA-Public Use
  Company Number: US-MERCK-0412USA02729

PATIENT
  Age: 93 Year
  Sex: Female

DRUGS (1)
  1. VIOXX [Suspect]
     Route: 048
     Dates: start: 20040621, end: 20040630

REACTIONS (4)
  - CARDIAC FAILURE CONGESTIVE [None]
  - COR PULMONALE [None]
  - PULMONARY HYPERTENSION [None]
  - WEIGHT INCREASED [None]
